FAERS Safety Report 5122545-1 (Version None)
Quarter: 2006Q4

REPORT INFORMATION
  Report Type: 
  Country: None (occurrence: None)
  Receive Date: 20061005
  Receipt Date: 20061005
  Transmission Date: 20070319
  Serious: No
  Sender: FDA-Public Use
  Company Number: None

PATIENT
  Age: 36 Year
  Sex: Female
  Weight: 58.9676 kg

DRUGS (1)
  1. LITHIUM ER   450 MG [Suspect]
     Indication: BIPOLAR DISORDER
     Dosage: 4 450MG TOTAL DAILY 1 800 MG ONCE DAILY PO
     Route: 048
     Dates: start: 20040104, end: 20040924

REACTIONS (1)
  - TREMOR [None]
